FAERS Safety Report 17563766 (Version 1)
Quarter: 2020Q1

REPORT INFORMATION
  Report Type: Report from Study
  Country: US (occurrence: US)
  Receive Date: 20200320
  Receipt Date: 20200320
  Transmission Date: 20200409
  Serious: Yes (Hospitalization, Other)
  Sender: FDA-Public Use
  Company Number: US-AUROBINDO-AUR-APL-2020-013851

PATIENT
  Age: 58 Year
  Sex: Female

DRUGS (1)
  1. FUROSEMIDE. [Suspect]
     Active Substance: FUROSEMIDE
     Indication: ASCITES
     Dosage: 40 MILLIGRAM, DAILY
     Route: 042

REACTIONS (8)
  - Hyponatraemia [Unknown]
  - Fatigue [Unknown]
  - Breath sounds abnormal [Unknown]
  - Hypotension [Unknown]
  - Oedema [Unknown]
  - Mucosal dryness [Unknown]
  - Abdominal distension [Unknown]
  - Asthenia [Unknown]
